FAERS Safety Report 4750127-X (Version None)
Quarter: 2005Q3

REPORT INFORMATION
  Report Type: 
  Country: None (occurrence: None)
  Receive Date: 20050823
  Receipt Date: 20020930
  Transmission Date: 20060218
  Serious: No
  Sender: FDA-Public Use
  Company Number: US-BOEHRINGER INGELHEIM PHARMACEUTICALS, INC.-2002-DE-02343GD

PATIENT
  Age: 26 Year
  Sex: Female

DRUGS (5)
  1. NEVIRAPINE [Suspect]
     Indication: ACQUIRED IMMUNODEFICIENCY SYNDROME
  2. AZT [Suspect]
     Indication: ACQUIRED IMMUNODEFICIENCY SYNDROME
  3. 3TC [Suspect]
     Indication: ACQUIRED IMMUNODEFICIENCY SYNDROME
  4. D4T [Suspect]
     Indication: ACQUIRED IMMUNODEFICIENCY SYNDROME
  5. MEDICINALPRODUCT NOT SPECIFIED BY SENDER [Concomitant]

REACTIONS (6)
  - DRUG INEFFECTIVE [None]
  - IMMUNE RECONSTITUTION SYNDROME [None]
  - KAPOSI'S SARCOMA AIDS RELATED [None]
  - ODYNOPHAGIA [None]
  - OLIGOHYDRAMNIOS [None]
  - PLEURAL EFFUSION [None]
